FAERS Safety Report 8955134 (Version 1)
Quarter: 2012Q4

REPORT INFORMATION
  Report Type: Report from Study
  Country: AT (occurrence: AT)
  Receive Date: 20121207
  Receipt Date: 20121207
  Transmission Date: 20130627
  Serious: Yes (Death, Other)
  Sender: FDA-Public Use
  Company Number: AT-GENZYME-CAMP-1002314

PATIENT
  Age: 63 Year
  Sex: Male

DRUGS (5)
  1. CAMPATH [Suspect]
     Indication: T-CELL LYMPHOMA
     Dosage: 30 mg (day 1 of cycles 2-5 at 14 day interval)
     Route: 058
     Dates: start: 20101220, end: 20110131
  2. CYCLOPHOSPHAMIDE [Concomitant]
     Indication: T-CELL LYMPHOMA
     Dosage: UNK
     Route: 065
  3. DOXORUBICIN [Concomitant]
     Indication: T-CELL LYMPHOMA
     Dosage: UNK
     Route: 065
  4. VINCRISTINE [Concomitant]
     Indication: T-CELL LYMPHOMA
     Dosage: UNK
     Route: 065
  5. PREDNISONE [Concomitant]
     Indication: T-CELL LYMPHOMA
     Dosage: UNK
     Route: 065

REACTIONS (4)
  - Circulatory collapse [Fatal]
  - Cerebral infarction [Unknown]
  - Renal failure acute [Fatal]
  - Cytomegalovirus infection [Fatal]
